FAERS Safety Report 7141392-2 (Version None)
Quarter: 2010Q4

REPORT INFORMATION
  Report Type: 
  Country: None (occurrence: None)
  Receive Date: 20101203
  Receipt Date: 20101203
  Transmission Date: 20110411
  Serious: Yes (Hospitalization)
  Sender: FDA-Public Use
  Company Number: None

PATIENT
  Age: 65 Year
  Sex: Female
  Weight: 59 kg

DRUGS (13)
  1. ROMIDEPSIN 10MG/M^2 (CELGENE) [Suspect]
     Indication: NEOPLASM MALIGNANT
     Dosage: 16.1 MG IV DAYS 1,8, 15
     Route: 042
     Dates: start: 20101201
  2. ERLOTINIB 150 MG (GENZYME) [Suspect]
     Indication: NEOPLASM MALIGNANT
     Dosage: 150 MG PO DAILY
     Route: 048
  3. DECADRON [Concomitant]
  4. PROCHLORPERAZINE (COMPAZINE) [Concomitant]
  5. FLUTICASONE (FLOVENT HFA) [Concomitant]
  6. DOCUSATE SODIUM (COLACE) [Concomitant]
  7. SENNA-DOCUSATE (SENOKOT-S) [Concomitant]
  8. ATIVAN [Concomitant]
  9. MORPHINE [Concomitant]
  10. ZOFRAN [Concomitant]
  11. MAGNESIUM HYDROXIDE (PHILLIPS MILK OF MAGNESIA) [Concomitant]
  12. WHEAT DEXTRIN-CALCIUM COMB #15 (BENEFIBER PLUS CALCIUM) [Concomitant]
  13. TRIAMCINOLONE ACETONIDE (NASCORT AQ) [Concomitant]

REACTIONS (6)
  - CONTUSION [None]
  - FAECAL INCONTINENCE [None]
  - FALL [None]
  - MENTAL STATUS CHANGES [None]
  - PERIORBITAL OEDEMA [None]
  - VOMITING [None]
